FAERS Safety Report 16113011 (Version 1)
Quarter: 2019Q1

REPORT INFORMATION
  Report Type: Spontaneous
  Country: GB (occurrence: GB)
  Receive Date: 20190325
  Receipt Date: 20190325
  Transmission Date: 20190418
  Serious: Yes (Other)
  Sender: FDA-Public Use
  Company Number: GB-TEVA-2019-GB-1028030

PATIENT
  Age: 77 Year
  Sex: Female
  Weight: 57.4 kg

DRUGS (17)
  1. LANSOPRAZOLE. [Concomitant]
     Active Substance: LANSOPRAZOLE
  2. AVAMYS [Concomitant]
     Active Substance: FLUTICASONE FUROATE
  3. AMITRIPTYLINE HYDROCHLORIDE. [Concomitant]
     Active Substance: AMITRIPTYLINE HYDROCHLORIDE
  4. ALENDRONIC ACID [Concomitant]
     Active Substance: ALENDRONIC ACID
  5. PRAVASTATIN SODIUM. [Concomitant]
     Active Substance: PRAVASTATIN SODIUM
     Dosage: ADVISED TO OMIT WHILST TAKING DOXYCYCLINE
  6. COLOMYCIN [Concomitant]
  7. RANITIDINE HYDROCHLORIDE. [Concomitant]
     Active Substance: RANITIDINE HYDROCHLORIDE
  8. TILDIEM [Concomitant]
     Active Substance: DILTIAZEM HYDROCHLORIDE
  9. SALBUTAMOL [Concomitant]
     Active Substance: ALBUTEROL
  10. AZITHROMYCIN ANHYDROUS. [Concomitant]
     Active Substance: AZITHROMYCIN ANHYDROUS
  11. VENTOLIN [Concomitant]
     Active Substance: ALBUTEROL SULFATE
  12. DOXYCYCLINE. [Suspect]
     Active Substance: DOXYCYCLINE
     Indication: LOWER RESPIRATORY TRACT INFECTION
     Dosage: 100MG TWO INITIALLY, THEN ONE TO BE TAKEN ONCE A DAY
     Route: 048
     Dates: start: 20190221, end: 20190224
  13. AMOXICILLIN. [Concomitant]
     Active Substance: AMOXICILLIN
  14. STERINEB SALINE [Concomitant]
  15. ACETYLSALICYLIC ACID [Concomitant]
     Active Substance: ASPIRIN
  16. PARACETAMOL [Concomitant]
     Active Substance: ACETAMINOPHEN
  17. MONOMIL XL [Concomitant]
     Active Substance: ISOSORBIDE MONONITRATE

REACTIONS (4)
  - Eyelid function disorder [Unknown]
  - Facial paralysis [Unknown]
  - Facial paralysis [Not Recovered/Not Resolved]
  - Oral discomfort [Unknown]

NARRATIVE: CASE EVENT DATE: 20190223
